FAERS Safety Report 5102008-X (Version None)
Quarter: 2006Q3

REPORT INFORMATION
  Report Type: 
  Country: None (occurrence: None)
  Receive Date: 20060907
  Receipt Date: 20060816
  Transmission Date: 20061208
  Serious: Yes (Other)
  Sender: FDA-Public Use
  Company Number: 2006100446

PATIENT
  Sex: Female

DRUGS (6)
  1. NEURONTIN [Suspect]
     Indication: CONVULSION
  2. DILANTIN [Suspect]
     Indication: CONVULSION
     Dates: end: 20050101
  3. LYRICA [Suspect]
     Indication: CONVULSION
     Dosage: 600 MG (300 MG, 2 IN 1 D)
     Dates: start: 20060201
  4. KEPPRA [Suspect]
     Indication: CONVULSION
     Dates: start: 20050101, end: 20060101
  5. LAMICTAL [Suspect]
     Indication: CONVULSION
     Dates: start: 20060101, end: 20060101
  6. TEGRETOL [Concomitant]

REACTIONS (9)
  - CONVULSION [None]
  - DRUG HYPERSENSITIVITY [None]
  - DRUG INEFFECTIVE [None]
  - LOSS OF CONSCIOUSNESS [None]
  - MENSTRUATION IRREGULAR [None]
  - SEDATION [None]
  - SOMNOLENCE [None]
  - WEIGHT FLUCTUATION [None]
  - WEIGHT INCREASED [None]
